FAERS Safety Report 6261658-8 (Version None)
Quarter: 2009Q3

REPORT INFORMATION
  Report Type: 
  Country: None (occurrence: None)
  Receive Date: 20090709
  Receipt Date: 20090701
  Transmission Date: 20100115
  Serious: Yes (Hospitalization)
  Sender: FDA-Public Use
  Company Number: GB-JNJFOC-20090701180

PATIENT
  Age: 25 Year
  Sex: Male

DRUGS (3)
  1. REMICADE [Suspect]
     Indication: CROHN'S DISEASE
     Route: 042
  2. CORTICOSTEROIDS [Concomitant]
     Dosage: HIGH DOSES
  3. METHOTREXATE [Concomitant]

REACTIONS (1)
  - OPPORTUNISTIC INFECTION [None]
